FAERS Safety Report 19716581 (Version 1)
Quarter: 2021Q3

REPORT INFORMATION
  Report Type: Spontaneous
  Country: US (occurrence: US)
  Receive Date: 20210819
  Receipt Date: 20210819
  Transmission Date: 20211014
  Serious: No
  Sender: FDA-Public Use
  Company Number: US-CADILA HEALTHCARE LIMITED-US-ZYDUS-063824

PATIENT

DRUGS (2)
  1. ATORVASTATIN [Concomitant]
     Active Substance: ATORVASTATIN
     Indication: BLOOD CHOLESTEROL
     Dosage: UNK
  2. ENTECAVIR 0.5 MILLIGRAM TABLET [Suspect]
     Active Substance: ENTECAVIR
     Indication: HEPATITIS
     Dosage: 0.5 MILLIGRAM, QD
     Route: 048
     Dates: start: 202011, end: 202101

REACTIONS (1)
  - Vision blurred [Not Recovered/Not Resolved]

NARRATIVE: CASE EVENT DATE: 202011
